FAERS Safety Report 9440836 (Version 1)
Quarter: 2013Q3

REPORT INFORMATION
  Report Type: Spontaneous
  Country: US (occurrence: None)
  Receive Date: 20130801
  Receipt Date: 20130801
  Transmission Date: 20140515
  Serious: Yes (Other)
  Sender: FDA-Public Use
  Company Number: 2013P1013239

PATIENT
  Age: 60 Year
  Sex: Female

DRUGS (2)
  1. INFUMORPH [Suspect]
     Indication: PAIN
  2. BUPIVACAINE [Suspect]
     Indication: PAIN

REACTIONS (4)
  - Device dislocation [None]
  - Device occlusion [None]
  - Musculoskeletal pain [None]
  - Medical device complication [None]
